FAERS Safety Report 6255314-X (Version None)
Quarter: 2009Q3

REPORT INFORMATION
  Report Type: 
  Country: None (occurrence: None)
  Receive Date: 20090702
  Receipt Date: 20090626
  Transmission Date: 20100115
  Serious: Yes (Hospitalization, Other)
  Sender: FDA-Public Use
  Company Number: US-JNJFOC-20090700148

PATIENT
  Sex: Male
  Weight: 86.18 kg

DRUGS (1)
  1. DURAGESIC-100 [Suspect]
     Indication: BACK PAIN
     Route: 062

REACTIONS (9)
  - APPLICATION SITE URTICARIA [None]
  - ARTERIAL OCCLUSIVE DISEASE [None]
  - BODY HEIGHT DECREASED [None]
  - CATHETERISATION CARDIAC [None]
  - HYPERTENSION [None]
  - PROSTATOMEGALY [None]
  - RHINORRHOEA [None]
  - URTICARIA [None]
  - WEIGHT INCREASED [None]
